FAERS Safety Report 9914663 (Version 4)
Quarter: 2014Q2

REPORT INFORMATION
  Report Type: Spontaneous
  Country: IT (occurrence: IT)
  Receive Date: 20140220
  Receipt Date: 20140516
  Transmission Date: 20141212
  Serious: Yes (Hospitalization, Other)
  Sender: FDA-Public Use
  Company Number: IT-ELI_LILLY_AND_COMPANY-IT201401011629

PATIENT
  Age: 20 Year
  Sex: Male

DRUGS (4)
  1. ZYPREXA [Suspect]
     Indication: SCHIZOPHRENIA
     Dosage: 10 MG, QD
     Route: 048
     Dates: start: 201212, end: 20140107
  2. ZYPREXA [Suspect]
     Dosage: 420 MG, SINGLE
     Route: 048
     Dates: start: 20140107, end: 20140107
  3. TRITTICO [Suspect]
     Indication: INSOMNIA
     Dosage: 100 MG, PRN
     Route: 048
  4. TRITTICO [Suspect]
     Dosage: 1500 MG, SINGLE
     Route: 048
     Dates: start: 20140107, end: 20140107

REACTIONS (19)
  - Suicide attempt [Recovered/Resolved]
  - Tachycardia [Recovered/Resolved]
  - Long QT syndrome [Recovered/Resolved]
  - Leukocytosis [Recovered/Resolved]
  - Neutrophil count increased [Recovered/Resolved]
  - Monocyte count increased [Recovering/Resolving]
  - Psychotic disorder [Recovered/Resolved]
  - Face injury [Unknown]
  - Glomerular filtration rate decreased [Recovered/Resolved]
  - Aspartate aminotransferase increased [Recovered/Resolved]
  - Blood creatine phosphokinase increased [Recovered/Resolved]
  - Intentional overdose [Recovered/Resolved]
  - Dysarthria [Recovering/Resolving]
  - Somnolence [Recovered/Resolved]
  - Blood glucose increased [Recovered/Resolved]
  - Agitation [Recovered/Resolved]
  - Pyrexia [Recovered/Resolved]
  - Aggression [Recovered/Resolved]
  - Drug abuse [Unknown]
